FAERS Safety Report 6555129-9 (Version None)
Quarter: 2010Q1

REPORT INFORMATION
  Report Type: 
  Country: None (occurrence: None)
  Receive Date: 20100126
  Receipt Date: 20100126
  Transmission Date: 20100710
  Serious: Yes (Other)
  Sender: FDA-Public Use
  Company Number: None

PATIENT
  Age: 40 Year
  Sex: Female
  Weight: 61.2356 kg

DRUGS (4)
  1. ZYRTEC [Suspect]
     Indication: INFECTION PARASITIC
     Dosage: 10 MG THEN 5 MG DAILY THEN 2 DAYS PO
     Route: 048
     Dates: start: 20071101, end: 20100120
  2. ZYRTEC [Suspect]
     Indication: PRURITUS
     Dosage: 10 MG THEN 5 MG DAILY THEN 2 DAYS PO
     Route: 048
     Dates: start: 20071101, end: 20100120
  3. ZYRTEC [Suspect]
     Indication: SKIN INFECTION
     Dosage: 10 MG THEN 5 MG DAILY THEN 2 DAYS PO
     Route: 048
     Dates: start: 20071101, end: 20100120
  4. WAL-ZYR 10 MG WALGREEN CO. [Suspect]
     Dosage: 10 MG THEN 5 MG DAILY THEN 2 DAYS PO
     Route: 048
     Dates: start: 20071102, end: 20100120

REACTIONS (10)
  - ARTHRALGIA [None]
  - DRUG DOSE OMISSION [None]
  - FATIGUE [None]
  - IRRITABILITY [None]
  - JOINT STIFFNESS [None]
  - MOOD SWINGS [None]
  - MUSCULOSKELETAL STIFFNESS [None]
  - PAIN IN EXTREMITY [None]
  - PRURITUS [None]
  - URTICARIA [None]
